FAERS Safety Report 7465235-2 (Version None)
Quarter: 2011Q2

REPORT INFORMATION
  Report Type: 
  Country: None (occurrence: None)
  Receive Date: 20110505
  Receipt Date: 20110505
  Transmission Date: 20111010
  Serious: Yes (Hospitalization, Disabling)
  Sender: FDA-Public Use
  Company Number: None

PATIENT
  Age: 72 Year
  Sex: Female

DRUGS (7)
  1. PRILOSEC OTC [Concomitant]
  2. GLUCOSAMINE SULFATE [Concomitant]
  3. CLARITIN [Concomitant]
  4. ALENDRONATE SODIUM [Suspect]
     Indication: OSTEOPENIA
     Dosage: 70MG Q WK PO SEVERAL YEARS
     Route: 048
  5. CALCIUM CARBONATE [Concomitant]
  6. PRINZIDE [Concomitant]
  7. MULTIVITAMIN WITH MINERALS [Concomitant]

REACTIONS (2)
  - FEMUR FRACTURE [None]
  - STRESS FRACTURE [None]
